FAERS Safety Report 6137901-2 (Version None)
Quarter: 2009Q1

REPORT INFORMATION
  Report Type: 
  Country: None (occurrence: None)
  Receive Date: 20090327
  Receipt Date: 20090327
  Transmission Date: 20090719
  Serious: Yes (Hospitalization, Disabling, Other)
  Sender: FDA-Public Use
  Company Number: None

PATIENT
  Sex: Female
  Weight: 45.3597 kg

DRUGS (2)
  1. NAPROXEN [Suspect]
     Indication: JOINT INJURY
     Dosage: 550MG TWICE DAILY
     Dates: start: 20090112, end: 20090115
  2. MICROGESTIN 1/20 [Suspect]
     Indication: AMENORRHOEA
     Dosage: 1/20MG ONCE DAILY
     Dates: start: 20090109, end: 20090115

REACTIONS (13)
  - CHILLS [None]
  - DYSPEPSIA [None]
  - EYE IRRITATION [None]
  - FIBROMYALGIA [None]
  - GASTRITIS [None]
  - GASTROOESOPHAGEAL REFLUX DISEASE [None]
  - HEADACHE [None]
  - HYPOAESTHESIA [None]
  - MUSCLE SPASMS [None]
  - PALPITATIONS [None]
  - PANIC ATTACK [None]
  - PANIC DISORDER [None]
  - VISION BLURRED [None]
